FAERS Safety Report 5307197-X (Version None)
Quarter: 2007Q2

REPORT INFORMATION
  Report Type: 
  Country: None (occurrence: None)
  Receive Date: 20070425
  Receipt Date: 20070327
  Transmission Date: 20071010
  Serious: No
  Sender: FDA-Public Use
  Company Number: US-AMGEN-US214974

PATIENT
  Sex: Male

DRUGS (5)
  1. VECTIBIX [Suspect]
     Indication: COLORECTAL CANCER
     Route: 065
     Dates: start: 20070306
  2. CAMPTOSAR [Concomitant]
     Route: 042
     Dates: start: 20070306
  3. ZOFRAN [Concomitant]
     Route: 042
  4. DECADRON [Concomitant]
     Route: 042
  5. BENADRYL [Concomitant]
     Route: 042

REACTIONS (1)
  - DERMATITIS ACNEIFORM [None]
